FAERS Safety Report 17814114 (Version 1)
Quarter: 2020Q2

REPORT INFORMATION
  Report Type: Spontaneous
  Country: US (occurrence: US)
  Receive Date: 20200521
  Receipt Date: 20200521
  Transmission Date: 20200714
  Serious: No
  Sender: FDA-Public Use
  Company Number: US-AMGEN-USASP2020080359

PATIENT
  Age: 77 Year
  Sex: Female

DRUGS (2)
  1. PREVACID [Concomitant]
     Active Substance: LANSOPRAZOLE
  2. PROLIA [Suspect]
     Active Substance: DENOSUMAB
     Indication: OSTEOPOROSIS POSTMENOPAUSAL
     Dosage: UNK
     Route: 065
     Dates: start: 202003

REACTIONS (2)
  - Abdominal pain lower [Unknown]
  - Nausea [Unknown]
